FAERS Safety Report 10044614 (Version 2)
Quarter: 2014Q1

REPORT INFORMATION
  Report Type: Spontaneous
  Country: US (occurrence: US)
  Receive Date: 20140328
  Receipt Date: 20140328
  Transmission Date: 20141002
  Serious: Yes (Disabling)
  Sender: FDA-Public Use
  Company Number: US-GE HEALTHCARE MEDICAL DIAGNOSTICS-OSCN-PR-0807S-0465

PATIENT
  Age: 39 Year
  Sex: Female
  Weight: 109 kg

DRUGS (6)
  1. OMNISCAN [Suspect]
     Indication: PRODUCT USED FOR UNKNOWN INDICATION
     Route: 042
     Dates: start: 20030808, end: 20030808
  2. OMNISCAN [Suspect]
     Indication: CONGENITAL CYSTIC KIDNEY DISEASE
     Route: 042
     Dates: start: 20050831, end: 20050831
  3. OMNISCAN [Suspect]
     Indication: COAGULOPATHY
     Route: 042
     Dates: start: 20060703, end: 20060703
  4. GADOLINIUM (UNSPECIFIED) [Suspect]
     Indication: RENAL TRANSPLANT
     Route: 042
     Dates: start: 20001222, end: 20001222
  5. GADOLINIUM (UNSPECIFIED) [Suspect]
     Indication: PRODUCT USED FOR UNKNOWN INDICATION
     Route: 042
     Dates: start: 20030811, end: 20030811
  6. GADOLINIUM (UNSPECIFIED) [Suspect]
     Indication: VERTIGO
     Route: 042
     Dates: start: 20040210, end: 20040210

REACTIONS (1)
  - Nephrogenic systemic fibrosis [Not Recovered/Not Resolved]
